FAERS Safety Report 4569111-4 (Version None)
Quarter: 2005Q1

REPORT INFORMATION
  Report Type: 
  Country: None (occurrence: None)
  Receive Date: 20050201
  Receipt Date: 20050120
  Transmission Date: 20050727
  Serious: Yes (Death)
  Sender: FDA-Public Use
  Company Number: 200510309BCC

PATIENT
  Age: 48 Year
  Sex: Female
  Weight: 68.0396 kg

DRUGS (5)
  1. ALEVE (CAPLET) [Suspect]
     Indication: BACK PAIN
     Dosage: PRN, ORAL
     Route: 048
     Dates: start: 20040401, end: 20041220
  2. COZAAR [Concomitant]
  3. GLUCOTROL [Concomitant]
  4. BENADRYL ^WARNER-LAMBERT^ [Concomitant]
  5. MELATONIN [Concomitant]

REACTIONS (1)
  - DEATH [None]
